FAERS Safety Report 8120100-2 (Version None)
Quarter: 2012Q1

REPORT INFORMATION
  Report Type: 
  Country: None (occurrence: None)
  Receive Date: 20120207
  Receipt Date: 20120121
  Transmission Date: 20120608
  Serious: Yes (Hospitalization)
  Sender: FDA-Public Use
  Company Number: US-ACTELION-A-US2011-58483

PATIENT

DRUGS (4)
  1. REVATIO [Concomitant]
  2. TRACLEER [Suspect]
     Indication: PULMONARY ARTERIAL HYPERTENSION
     Dosage: 125 MG, BID
     Route: 048
     Dates: start: 20080719
  3. TRACLEER [Suspect]
     Dosage: 62.5 MG, BID
     Route: 048
     Dates: start: 20080619, end: 20080718
  4. COUMADIN [Concomitant]

REACTIONS (6)
  - SUPERIOR MESENTERIC ARTERY SYNDROME [None]
  - ANGIOPLASTY [None]
  - ABDOMINAL PAIN [None]
  - GASTRITIS [None]
  - NAUSEA [None]
  - VOMITING [None]
